FAERS Safety Report 21587037 (Version 1)
Quarter: 2022Q4

REPORT INFORMATION
  Report Type: Spontaneous
  Country: US (occurrence: US)
  Receive Date: 20221113
  Receipt Date: 20221113
  Transmission Date: 20230112
  Serious: No
  Sender: FDA-Public Use
  Company Number: US-JNJFOC-20221102270

PATIENT
  Sex: Male

DRUGS (2)
  1. RISPERDAL [Interacting]
     Active Substance: RISPERIDONE
     Indication: Product used for unknown indication
     Route: 065
  2. QELBREE [Interacting]
     Active Substance: VILOXAZINE HYDROCHLORIDE
     Indication: Attention deficit hyperactivity disorder
     Route: 065

REACTIONS (5)
  - Fall [Unknown]
  - Lower limb fracture [Unknown]
  - Ligament sprain [Unknown]
  - Dyskinesia [Unknown]
  - Drug interaction [Unknown]
